FAERS Safety Report 19116739 (Version 2)
Quarter: 2021Q2

REPORT INFORMATION
  Report Type: Report from Study
  Country: US (occurrence: US)
  Receive Date: 20210409
  Receipt Date: 20210427
  Transmission Date: 20210717
  Serious: No
  Sender: FDA-Public Use
  Company Number: US-GW PHARMA-202103USGW01391

PATIENT

DRUGS (4)
  1. EPIDIOLEX [Suspect]
     Active Substance: CANNABIDIOL
     Indication: SEVERE MYOCLONIC EPILEPSY OF INFANCY
     Dosage: 19.17 MG/KG/DAY, 1200 MILLIGRAM, QD (SINCE 4 YEARS, 9 MONTHS)
     Route: 048
     Dates: start: 2015
  2. MARIJUANA [Concomitant]
     Active Substance: CANNABIS SATIVA SUBSP. INDICA TOP
     Indication: SEIZURE
     Dosage: UNK
     Route: 065
  3. FELBAMATE. [Concomitant]
     Active Substance: FELBAMATE
     Indication: SEIZURE
     Dosage: UNK
     Route: 065
  4. VALPROATE [Concomitant]
     Active Substance: VALPROIC ACID
     Indication: SEIZURE
     Dosage: UNK
     Route: 065

REACTIONS (1)
  - Condition aggravated [Unknown]
